FAERS Safety Report 9213128 (Version 1)
Quarter: 2013Q2

REPORT INFORMATION
  Report Type: Spontaneous
  Country: RU (occurrence: RU)
  Receive Date: 20130405
  Receipt Date: 20130405
  Transmission Date: 20140414
  Serious: Yes (Hospitalization, Other)
  Sender: FDA-Public Use
  Company Number: RU-JNJFOC-20130317966

PATIENT
  Age: 27 Year
  Sex: Male

DRUGS (11)
  1. REMICADE [Suspect]
     Indication: RHEUMATOID ARTHRITIS
     Route: 042
     Dates: start: 20120522
  2. REMICADE [Suspect]
     Indication: RHEUMATOID ARTHRITIS
     Route: 042
     Dates: start: 201206
  3. REMICADE [Suspect]
     Indication: ANKYLOSING SPONDYLITIS
     Route: 042
     Dates: start: 20120522
  4. REMICADE [Suspect]
     Indication: ANKYLOSING SPONDYLITIS
     Route: 042
     Dates: start: 201206
  5. METHYLPREDNISOLONE [Concomitant]
     Indication: PREMEDICATION
     Route: 065
  6. LYRICA [Concomitant]
     Dosage: ACCORDING TO SCHEDULE (AFTER RELEASE FROM HOSPITAL)
     Route: 065
  7. METHOTREXATE [Concomitant]
     Route: 065
  8. METHOTREXATE [Concomitant]
     Route: 065
  9. METHOTREXATE [Concomitant]
     Route: 065
  10. PREDNISOLONE [Concomitant]
     Route: 065
  11. FOLIC ACID [Concomitant]
     Dosage: 0.001 1 TABLET 3 TIMES A DAY. (EXCLUDING THE METHYLPRED INTAKE DAYS)
     Route: 065

REACTIONS (2)
  - Tuberculosis [Unknown]
  - Hospitalisation [Unknown]
